FAERS Safety Report 15059749 (Version 1)
Quarter: 2018Q2

REPORT INFORMATION
  Report Type: Spontaneous
  Country: US (occurrence: US)
  Receive Date: 20180625
  Receipt Date: 20180625
  Transmission Date: 20180711
  Serious: No
  Sender: FDA-Public Use
  Company Number: US-SA-2018SA083287

PATIENT
  Age: 71 Year
  Sex: Male

DRUGS (1)
  1. ENOXAPARIN SODIUM - WINTHROP [Suspect]
     Active Substance: ENOXAPARIN SODIUM
     Dosage: UNK UNK,UNK
     Route: 065
     Dates: start: 20180112

REACTIONS (2)
  - Injection site pain [Unknown]
  - Needle issue [Unknown]
